FAERS Safety Report 23886190 (Version 1)
Quarter: 2024Q2

REPORT INFORMATION
  Report Type: Spontaneous
  Country: SE (occurrence: SE)
  Receive Date: 20240522
  Receipt Date: 20240522
  Transmission Date: 20240715
  Serious: Yes (Death)
  Sender: FDA-Public Use
  Company Number: None

PATIENT
  Age: 56 Year
  Sex: Female

DRUGS (2)
  1. FRAGMIN [Suspect]
     Active Substance: DALTEPARIN SODIUM
     Dosage: UNK
     Dates: start: 20240423
  2. WARFARIN SODIUM [Suspect]
     Active Substance: WARFARIN SODIUM
     Indication: Aortic valve replacement
     Dosage: UNK
     Dates: end: 20240422

REACTIONS (3)
  - Haemorrhagic transformation stroke [Fatal]
  - Brain oedema [Fatal]
  - Brain compression [Fatal]

NARRATIVE: CASE EVENT DATE: 20240425
